FAERS Safety Report 7986830-8 (Version None)
Quarter: 2011Q4

REPORT INFORMATION
  Report Type: 
  Country: None (occurrence: None)
  Receive Date: 20111216
  Receipt Date: 20110901
  Transmission Date: 20120403
  Serious: No
  Sender: FDA-Public Use
  Company Number: US-BRISTOL-MYERS SQUIBB COMPANY-16024382

PATIENT
  Sex: Female

DRUGS (8)
  1. TRAZODONE HCL [Concomitant]
     Indication: DEPRESSION
  2. EFFEXOR [Concomitant]
     Indication: DEPRESSION
  3. TRAZODONE HCL [Concomitant]
     Indication: POSTPARTUM DEPRESSION
  4. TEGRETOL [Concomitant]
     Indication: POSTPARTUM DEPRESSION
  5. EFFEXOR [Concomitant]
     Indication: POSTPARTUM DEPRESSION
  6. ABILIFY [Suspect]
     Indication: POSTPARTUM DEPRESSION
     Dates: start: 20110901
  7. TEGRETOL [Concomitant]
     Indication: DEPRESSION
  8. ABILIFY [Suspect]
     Indication: DEPRESSION
     Dates: start: 20110901

REACTIONS (1)
  - MEDICATION ERROR [None]
